FAERS Safety Report 6766438-2 (Version None)
Quarter: 2010Q2

REPORT INFORMATION
  Report Type: 
  Country: None (occurrence: None)
  Receive Date: 20100611
  Receipt Date: 20100605
  Transmission Date: 20101027
  Serious: Yes (Hospitalization)
  Sender: FDA-Public Use
  Company Number: US-JNJFOC-20100602676

PATIENT
  Sex: Female
  Weight: 83.01 kg

DRUGS (1)
  1. DURAGESIC-100 [Suspect]
     Indication: INTERVERTEBRAL DISC PROTRUSION
     Dosage: NDC#: 50458-092-05
     Route: 062

REACTIONS (3)
  - HEADACHE [None]
  - INTERVERTEBRAL DISC PROTRUSION [None]
  - NAUSEA [None]
